FAERS Safety Report 9242638 (Version 5)
Quarter: 2017Q3

REPORT INFORMATION
  Report Type: Spontaneous
  Country: US (occurrence: JP)
  Receive Date: 20130419
  Receipt Date: 20170818
  Transmission Date: 20171128
  Serious: Yes (Disabling)
  Sender: FDA-Public Use
  Company Number: JP-009507513-1304JPN008278

PATIENT
  Sex: Male

DRUGS (1)
  1. FINASTERIDE. [Suspect]
     Active Substance: FINASTERIDE
     Indication: ANDROGENETIC ALOPECIA
     Dosage: 5 MG, UNKNOWN
     Route: 048
     Dates: start: 20030421, end: 20050616

REACTIONS (17)
  - Semen volume decreased [Not Recovered/Not Resolved]
  - Insomnia [Not Recovered/Not Resolved]
  - Sexual dysfunction [Not Recovered/Not Resolved]
  - Hand fracture [Unknown]
  - Anxiety [Not Recovered/Not Resolved]
  - Orgasm abnormal [Not Recovered/Not Resolved]
  - Memory impairment [Not Recovered/Not Resolved]
  - Laceration [Recovered/Resolved]
  - Depression [Not Recovered/Not Resolved]
  - Off label use [Unknown]
  - Respiration abnormal [Unknown]
  - Libido decreased [Not Recovered/Not Resolved]
  - Ejaculation disorder [Not Recovered/Not Resolved]
  - Adverse drug reaction [Unknown]
  - Cognitive disorder [Not Recovered/Not Resolved]
  - Eczema [Unknown]
  - Erectile dysfunction [Not Recovered/Not Resolved]

NARRATIVE: CASE EVENT DATE: 2003
